FAERS Safety Report 8127131-7 (Version None)
Quarter: 2011Q4

REPORT INFORMATION
  Report Type: 
  Country: None (occurrence: None)
  Receive Date: 20111227
  Receipt Date: 20110922
  Transmission Date: 20120403
  Serious: No
  Sender: FDA-Public Use
  Company Number: PHHY2011US30321

PATIENT
  Age: 57 Year
  Sex: Female

DRUGS (3)
  1. GILENYA [Suspect]
     Indication: MULTIPLE SCLEROSIS
     Dosage: 0.5 MG, QD, ORAL, 0.5 MG, DAILY, ORAL
     Route: 048
     Dates: start: 20110301
  2. GILENYA [Suspect]
     Indication: MULTIPLE SCLEROSIS
     Dosage: 0.5 MG, QD, ORAL, 0.5 MG, DAILY, ORAL
     Route: 048
     Dates: start: 20110407
  3. GILENYA [Suspect]

REACTIONS (5)
  - RASH [None]
  - BLOOD PRESSURE INCREASED [None]
  - HEADACHE [None]
  - WHITE BLOOD CELL COUNT DECREASED [None]
  - OVERDOSE [None]
